FAERS Safety Report 7978646-3 (Version None)
Quarter: 2011Q4

REPORT INFORMATION
  Report Type: 
  Country: None (occurrence: None)
  Receive Date: 20111214
  Receipt Date: 20111212
  Transmission Date: 20120403
  Serious: Yes (Death)
  Sender: FDA-Public Use
  Company Number: TR-SANOFI-AVENTIS-2011SA081319

PATIENT
  Age: 19 Year
  Sex: Female

DRUGS (9)
  1. CISPLATIN [Suspect]
     Indication: SIGNET-RING CELL CARCINOMA
     Dosage: DAY 1
     Route: 065
  2. CISPLATIN [Suspect]
     Dosage: DAY 1
     Route: 065
  3. THERAPEUTIC RADIOPHARMACEUTICALS [Concomitant]
     Indication: SIGNET-RING CELL CARCINOMA
  4. NEUPOGEN [Concomitant]
     Indication: PROPHYLAXIS
     Dosage: FOR EVERY 3 WEEKS
  5. METHOTREXATE [Concomitant]
     Indication: SIGNET-RING CELL CARCINOMA
     Dosage: RECEIVED 15 MG/DAY TWICE A WEEK FOR 3 WEEKS
     Route: 037
  6. FLUOROURACIL [Suspect]
     Indication: SIGNET-RING CELL CARCINOMA
     Dosage: RECEIVED ON DAY 1-5 EVERY 3 WEEKS.
     Route: 065
  7. DOCETAXEL [Suspect]
     Indication: SIGNET-RING CELL CARCINOMA
     Dosage: DAY 1
     Route: 065
  8. FLUOROURACIL [Suspect]
     Dosage: RECEIVED ON DAY 1-5 EVERY 3 WEEKS.
     Route: 065
  9. DOCETAXEL [Suspect]
     Dosage: DAY 1
     Route: 065

REACTIONS (2)
  - FEBRILE NEUTROPENIA [None]
  - SEPSIS [None]
